FAERS Safety Report 14013962 (Version 11)
Quarter: 2017Q4

REPORT INFORMATION
  Report Type: Report from Study
  Country: DE (occurrence: DE)
  Receive Date: 20170926
  Receipt Date: 20171124
  Transmission Date: 20180321
  Serious: Yes (Death, Life-Threatening, Hospitalization, Disabling, Other)
  Sender: FDA-Public Use
  Company Number: PHHO2017DE013367

PATIENT
  Age: 38 Year
  Sex: Female
  Weight: 71 kg

DRUGS (3)
  1. CTL019 [Suspect]
     Active Substance: TISAGENLECLEUCEL
     Indication: DIFFUSE LARGE B-CELL LYMPHOMA
     Dosage: 1.6929X108 CELLS
     Route: 042
     Dates: start: 20170914, end: 20170914
  2. COTRIM FORTE [Concomitant]
     Active Substance: SULFAMETHOXAZOLE\TRIMETHOPRIM
     Indication: PROPHYLAXIS
     Dosage: 960 MG, TIW
     Route: 048
     Dates: start: 201706
  3. ACICLOVIR [Concomitant]
     Active Substance: ACYCLOVIR
     Indication: PROPHYLAXIS
     Dosage: 500 MG, TIW
     Route: 048
     Dates: start: 201706, end: 20170920

REACTIONS (7)
  - Cytokine release syndrome [Recovered/Resolved]
  - Diffuse large B-cell lymphoma [Fatal]
  - Encephalopathy [Recovered/Resolved]
  - Polyneuropathy [Not Recovered/Not Resolved]
  - Meningeal disorder [Recovered/Resolved]
  - Malignant neoplasm progression [Fatal]
  - Asphyxia [Not Recovered/Not Resolved]

NARRATIVE: CASE EVENT DATE: 20170915
